FAERS Safety Report 7018708-0 (Version None)
Quarter: 2010Q3

REPORT INFORMATION
  Report Type: 
  Country: None (occurrence: None)
  Receive Date: 20100928
  Receipt Date: 20100924
  Transmission Date: 20110219
  Serious: Yes (Hospitalization, Other)
  Sender: FDA-Public Use
  Company Number: GBWYE931327JUL04

PATIENT
  Age: 69 Year
  Sex: Female

DRUGS (5)
  1. IBUPROFEN [Suspect]
     Indication: ARTHRITIS
     Route: 048
     Dates: start: 19860101
  2. IBUPROFEN [Suspect]
     Dates: start: 20020101, end: 20040702
  3. LIPITOR [Concomitant]
     Indication: BLOOD CHOLESTEROL INCREASED
     Route: 048
     Dates: start: 20000101
  4. PARACETAMOL [Concomitant]
     Indication: ARTHRITIS
     Dosage: 1 G PRN
     Route: 048
  5. VIOXX [Suspect]
     Indication: ARTHRITIS
     Route: 048
     Dates: start: 20040622, end: 20040702

REACTIONS (5)
  - DYSPNOEA [None]
  - GASTROINTESTINAL ULCER [None]
  - OESOPHAGITIS [None]
  - OVERDOSE [None]
  - SYNCOPE [None]
